FAERS Safety Report 17715221 (Version 1)
Quarter: 2020Q2

REPORT INFORMATION
  Report Type: Report from Study
  Country: US (occurrence: US)
  Receive Date: 20200427
  Receipt Date: 20200427
  Transmission Date: 20200714
  Serious: Yes (Death, Life-Threatening, Hospitalization, Other)
  Sender: FDA-Public Use
  Company Number: US-002147023-PHHY2017US177182

PATIENT
  Age: 37 Year
  Sex: Male
  Weight: 68.44 kg

DRUGS (121)
  1. VORICONAZOLE (NGX) [Suspect]
     Active Substance: VORICONAZOLE
     Indication: PRODUCT USED FOR UNKNOWN INDICATION
     Dosage: 450 MG, BID (EVERY 12 HOURS)
     Route: 042
     Dates: start: 20171104, end: 20171105
  2. CAYSTON [Suspect]
     Active Substance: AZTREONAM
     Dosage: UNK
     Route: 065
     Dates: start: 20170527, end: 20170630
  3. CAYSTON [Suspect]
     Active Substance: AZTREONAM
     Dosage: UNK
     Route: 065
     Dates: start: 20170722, end: 20170819
  4. OXYGEN. [Concomitant]
     Active Substance: OXYGEN
     Indication: INFECTIVE PULMONARY EXACERBATION OF CYSTIC FIBROSIS
     Dosage: UNK
     Route: 065
     Dates: start: 20150713, end: 20161001
  5. OXYGEN. [Concomitant]
     Active Substance: OXYGEN
     Dosage: UNK
     Route: 065
     Dates: start: 20161020, end: 20171108
  6. SEREVENT DISKUS [Concomitant]
     Active Substance: SALMETEROL XINAFOATE
     Indication: INFECTIVE PULMONARY EXACERBATION OF CYSTIC FIBROSIS
     Dosage: 50 UG, BID
     Route: 055
     Dates: start: 20151015, end: 20171128
  7. BACTRIM DS [Concomitant]
     Active Substance: SULFAMETHOXAZOLE\TRIMETHOPRIM
     Indication: COUGH
  8. FLONASE [Concomitant]
     Active Substance: FLUTICASONE PROPIONATE
     Indication: CYSTIC FIBROSIS
     Dosage: UNK
     Route: 065
     Dates: start: 20151202, end: 20171215
  9. ACTIGALL [Concomitant]
     Active Substance: URSODIOL
     Dosage: UNK
     Route: 065
     Dates: start: 20151015, end: 20171212
  10. MULTIVITAMINS [Concomitant]
     Active Substance: VITAMINS
     Indication: PRODUCT USED FOR UNKNOWN INDICATION
     Dosage: 1 DF, QD
     Route: 048
  11. NORVASC [Concomitant]
     Active Substance: AMLODIPINE BESYLATE
     Indication: PRODUCT USED FOR UNKNOWN INDICATION
     Dosage: 5 MG, QD
     Route: 048
     Dates: start: 20170927, end: 20171128
  12. CALCARB [Concomitant]
     Indication: SUPPLEMENTATION THERAPY
     Dosage: 600 OT, BID
     Route: 048
     Dates: start: 20110613
  13. ALBUTEROL. [Concomitant]
     Active Substance: ALBUTEROL
     Indication: COUGH
  14. PULMICORT TURBUHALER [Concomitant]
     Active Substance: BUDESONIDE
     Indication: INFECTIVE PULMONARY EXACERBATION OF CYSTIC FIBROSIS
     Dosage: UNK
     Route: 065
     Dates: start: 20160222, end: 20171212
  15. FENTANYL. [Concomitant]
     Active Substance: FENTANYL
     Indication: PAIN
     Dosage: UNK
     Route: 065
     Dates: start: 20180119, end: 20180125
  16. SOLU-MEDROL [Concomitant]
     Active Substance: METHYLPREDNISOLONE SODIUM SUCCINATE
     Indication: RESPIRATORY FAILURE
     Dosage: UNK
     Route: 065
     Dates: start: 20180118, end: 20180118
  17. TOBI PODHALER [Suspect]
     Active Substance: TOBRAMYCIN
     Dosage: UNK
     Route: 055
     Dates: start: 20170820, end: 20170916
  18. TOBI PODHALER [Suspect]
     Active Substance: TOBRAMYCIN
     Dosage: 112 MG, TID ALTERNATE MONTHS
     Route: 055
     Dates: start: 20171128, end: 20171212
  19. BETHKIS [Suspect]
     Active Substance: TOBRAMYCIN
     Indication: CYSTIC FIBROSIS
     Dosage: UNK
     Route: 065
     Dates: start: 20171123, end: 20171128
  20. BACTRIM DS [Concomitant]
     Active Substance: SULFAMETHOXAZOLE\TRIMETHOPRIM
     Indication: BRONCHITIS
     Dosage: 800-160 MG, BID
     Route: 065
     Dates: start: 20170914, end: 20171104
  21. ROCURONIUM [Concomitant]
     Active Substance: ROCURONIUM BROMIDE
     Indication: SEDATION
     Dosage: UNK
     Route: 065
     Dates: start: 20171213
  22. ACTIGALL [Concomitant]
     Active Substance: URSODIOL
     Indication: CYSTIC FIBROSIS
     Dosage: 2 DF, BID
     Route: 048
  23. MIRALAX [Concomitant]
     Active Substance: POLYETHYLENE GLYCOL 3350
     Indication: PRODUCT USED FOR UNKNOWN INDICATION
     Dosage: 1 DF, QD
     Route: 048
  24. TOBI [Concomitant]
     Active Substance: TOBRAMYCIN
     Indication: PRODUCT USED FOR UNKNOWN INDICATION
     Dosage: 300 MG, BID
     Route: 055
     Dates: start: 20171123, end: 20171220
  25. MIRALAX [Concomitant]
     Active Substance: POLYETHYLENE GLYCOL 3350
     Dosage: 17 G, UNK
     Route: 048
     Dates: start: 20171215
  26. VITAMIIN C [Concomitant]
     Active Substance: ASCORBIC ACID
     Indication: NUTRITIONAL SUPPLEMENTATION
     Dosage: 1 DF, QD
     Route: 048
     Dates: start: 20110613, end: 20171215
  27. ZITHROMAX [Concomitant]
     Active Substance: AZITHROMYCIN DIHYDRATE
     Indication: INFECTIVE PULMONARY EXACERBATION OF CYSTIC FIBROSIS
     Dosage: 250 MG, MWF
     Route: 048
     Dates: start: 20151001, end: 20171104
  28. K-DUR [Concomitant]
     Active Substance: POTASSIUM CHLORIDE
     Indication: SUPPLEMENTATION THERAPY
     Dosage: 60 MG, FEEDING TUBE
     Route: 065
     Dates: start: 20180120
  29. LISPRO INSULIN [Concomitant]
     Active Substance: INSULIN LISPRO
     Indication: BLOOD GLUCOSE DECREASED
     Dosage: 18 U, UNK
     Route: 058
     Dates: start: 20171229
  30. VERSED [Concomitant]
     Active Substance: MIDAZOLAM HYDROCHLORIDE
     Indication: SEDATION
     Dosage: 2 MG, HR
     Route: 042
     Dates: start: 20180124
  31. CIPRO [Concomitant]
     Active Substance: CIPROFLOXACIN HYDROCHLORIDE
     Dosage: UNK
     Route: 065
     Dates: start: 20160520, end: 20160602
  32. OMEPRAZOLE. [Concomitant]
     Active Substance: OMEPRAZOLE
     Indication: CYSTIC FIBROSIS
     Dosage: UNK
     Route: 065
     Dates: start: 20140918, end: 20171128
  33. SOLU-MEDROL [Concomitant]
     Active Substance: METHYLPREDNISOLONE SODIUM SUCCINATE
     Dosage: UNK
     Route: 065
     Dates: start: 20180119, end: 20180125
  34. PROBIOTIC [Concomitant]
     Active Substance: PROBIOTICS NOS
     Indication: PRODUCT USED FOR UNKNOWN INDICATION
     Dosage: 1 DF, BID (WITH BREAKFAST AND DINNER)
     Route: 048
  35. ORKAMBI [Concomitant]
     Active Substance: IVACAFTOR\LUMACAFTOR
     Indication: INFECTIVE PULMONARY EXACERBATION OF CYSTIC FIBROSIS
     Dosage: 2 DF, BID (200-125 MG)
     Route: 065
     Dates: start: 201706, end: 20171104
  36. PULMOZYME [Concomitant]
     Active Substance: DORNASE ALFA
     Dosage: 2.5 ML, QD
     Route: 055
     Dates: start: 20171212
  37. HUMALOG [Concomitant]
     Active Substance: INSULIN LISPRO
     Dosage: UNK
     Route: 065
     Dates: start: 20180106
  38. CIPRO [Concomitant]
     Active Substance: CIPROFLOXACIN HYDROCHLORIDE
     Dosage: UNK
     Route: 065
     Dates: start: 20160804, end: 20160813
  39. SODIUM CHLORIDE. [Concomitant]
     Active Substance: SODIUM CHLORIDE
     Indication: CYSTIC FIBROSIS
     Dosage: UNK
     Route: 065
     Dates: start: 20160218, end: 20180113
  40. ZOFRAN [Concomitant]
     Active Substance: ONDANSETRON HYDROCHLORIDE
     Indication: NAUSEA
     Dosage: UNK
     Route: 065
     Dates: start: 20180116, end: 20180125
  41. TOBI PODHALER [Suspect]
     Active Substance: TOBRAMYCIN
     Dosage: 112 MG, TID ALTERNATE MONTHS
     Route: 055
     Dates: start: 20171015, end: 20171104
  42. VORICONAZOLE (NGX) [Suspect]
     Active Substance: VORICONAZOLE
     Dosage: 260 MG, Q12H
     Route: 042
     Dates: start: 20171213, end: 20180102
  43. CAYSTON [Suspect]
     Active Substance: AZTREONAM
     Dosage: 75 MG, TID ALTERNATE MONTHS
     Route: 055
     Dates: start: 20180113, end: 20180121
  44. BETHKIS [Suspect]
     Active Substance: TOBRAMYCIN
     Dosage: 300 MG/4ML, BID
     Route: 055
     Dates: start: 20180106, end: 20180113
  45. BACITRACIN. [Concomitant]
     Active Substance: BACITRACIN
     Indication: NASAL DISCOMFORT
     Dosage: UNK UNK, BID
     Route: 065
  46. ATARAX [Concomitant]
     Active Substance: HYDROXYZINE HYDROCHLORIDE
     Indication: CYSTIC FIBROSIS
     Dosage: UNK
     Route: 065
     Dates: start: 20150921, end: 20171213
  47. APRESOLINE HYDROCHLORIDE [Concomitant]
     Active Substance: HYDRALAZINE HYDROCHLORIDE
     Indication: PRODUCT USED FOR UNKNOWN INDICATION
     Dosage: UNK UNK, Q6H (0.5-1 ML)
     Route: 065
  48. TYLENOL [Concomitant]
     Active Substance: ACETAMINOPHEN
     Indication: PAIN
     Dosage: 2 DF (325 MG), UNK
     Route: 048
  49. TOBI [Concomitant]
     Active Substance: TOBRAMYCIN
     Dosage: 300 MG, BID (SMALL VOLUME NEBULIZER)
     Route: 055
     Dates: start: 20180106, end: 20180113
  50. MIRALAX [Concomitant]
     Active Substance: POLYETHYLENE GLYCOL 3350
     Indication: INFECTIVE PULMONARY EXACERBATION OF CYSTIC FIBROSIS
     Dosage: 850 MG, QD
     Route: 048
     Dates: start: 20161206
  51. LANTUS [Concomitant]
     Active Substance: INSULIN GLARGINE
     Dosage: 60 U, UNK
     Route: 058
     Dates: start: 20180124, end: 20180125
  52. DUONEB [Concomitant]
     Active Substance: ALBUTEROL SULFATE\IPRATROPIUM BROMIDE
     Indication: INFECTIVE PULMONARY EXACERBATION OF CYSTIC FIBROSIS
     Dosage: 3 ML (2.5 -0.5MG/3ML), UNK
     Route: 055
     Dates: start: 20171211
  53. CIPRO [Concomitant]
     Active Substance: CIPROFLOXACIN HYDROCHLORIDE
     Indication: INFECTIVE PULMONARY EXACERBATION OF CYSTIC FIBROSIS
     Dosage: UNK
     Route: 065
     Dates: start: 20160303, end: 20160313
  54. CHOLECALCIFEROL [Concomitant]
     Active Substance: CHOLECALCIFEROL
     Indication: VITAMIN D DEFICIENCY
     Dosage: 25 DROPS
     Route: 065
     Dates: start: 20171216
  55. MICAFUNGIN. [Concomitant]
     Active Substance: MICAFUNGIN SODIUM
     Indication: FUNGAL INFECTION
  56. DOXEPIN [Concomitant]
     Active Substance: DOXEPIN
     Indication: ATTENTION DEFICIT HYPERACTIVITY DISORDER
     Dosage: 25 MG, BID
     Route: 048
     Dates: start: 20171221
  57. CALCIUM CARBONATE. [Concomitant]
     Active Substance: CALCIUM CARBONATE
     Indication: SUPPLEMENTATION THERAPY
     Dosage: UNK
     Route: 065
     Dates: start: 20110613, end: 20171128
  58. SINEQUAN [Concomitant]
     Active Substance: DOXEPIN HYDROCHLORIDE
     Indication: AGITATION
     Dosage: UNK
     Route: 065
     Dates: start: 20150312, end: 20161006
  59. HEPARIN [Concomitant]
     Active Substance: HEPARIN SODIUM
     Indication: PROPHYLAXIS
     Dosage: UNK
     Route: 065
     Dates: start: 20170504, end: 20170526
  60. TOBI PODHALER [Suspect]
     Active Substance: TOBRAMYCIN
     Indication: PSEUDOMONAS INFECTION
     Dosage: UNK
     Route: 055
     Dates: start: 20160420, end: 20160517
  61. VORICONAZOLE (NGX) [Suspect]
     Active Substance: VORICONAZOLE
     Dosage: 300 MG, BID (EVERY 12 HOURS)
     Route: 042
     Dates: start: 20171105, end: 20171113
  62. CAYSTON [Suspect]
     Active Substance: AZTREONAM
     Indication: PRODUCT USED FOR UNKNOWN INDICATION
     Dosage: UNK
     Route: 065
     Dates: start: 20160725, end: 20160822
  63. CAYSTON [Suspect]
     Active Substance: AZTREONAM
     Dosage: 75 MG, TID ALTERNATE MONTHS
     Route: 065
     Dates: start: 20170918, end: 20171014
  64. AQUADEKS [Concomitant]
     Active Substance: MINERALS\VITAMINS
     Indication: CYSTIC FIBROSIS
     Dosage: UNK
     Route: 065
     Dates: start: 20130726, end: 20170512
  65. HYPERTONIC SALINE SOLUTION [Concomitant]
     Active Substance: SODIUM CHLORIDE
     Indication: COUGH
     Dosage: 70 %, QD
     Route: 065
     Dates: start: 20170512, end: 20171104
  66. MINOCYCLINE [Concomitant]
     Active Substance: MINOCYCLINE HYDROCHLORIDE
     Indication: PRODUCT USED FOR UNKNOWN INDICATION
     Dosage: 100 MG, BID
     Route: 048
     Dates: start: 20180103, end: 20180107
  67. PULMOZYME [Concomitant]
     Active Substance: DORNASE ALFA
     Indication: INFECTIVE PULMONARY EXACERBATION OF CYSTIC FIBROSIS
     Dosage: 2.5 ML, QD
     Route: 055
     Dates: start: 20150708
  68. ZITHROMAX [Concomitant]
     Active Substance: AZITHROMYCIN DIHYDRATE
     Dosage: 500 MG, QOD (MONDAY, WEDNESDAY AND FRIDAY)
     Route: 048
     Dates: start: 20171229
  69. HUMALOG [Concomitant]
     Active Substance: INSULIN LISPRO
     Indication: BLOOD GLUCOSE DECREASED
     Dosage: 18 U, UNK
     Route: 058
     Dates: start: 20171229
  70. MUCOMYST [Concomitant]
     Active Substance: ACETYLCYSTEINE
     Indication: INFECTIVE PULMONARY EXACERBATION OF CYSTIC FIBROSIS
     Dosage: 2 ML, UNK
     Route: 055
     Dates: start: 20180124
  71. CHOLECALCIFEROL [Concomitant]
     Active Substance: CHOLECALCIFEROL
     Indication: VITAMIN D DEFICIENCY
     Dosage: UNK UNK, QD (10,000 UNITS)
     Route: 048
  72. QVAR [Concomitant]
     Active Substance: BECLOMETHASONE DIPROPIONATE
     Indication: CYSTIC FIBROSIS
     Dosage: UNK
     Route: 065
     Dates: start: 20151104, end: 20170803
  73. LEXAPRO [Concomitant]
     Active Substance: ESCITALOPRAM OXALATE
     Indication: AGITATION
     Dosage: UNK
     Route: 065
     Dates: start: 20160906, end: 20170504
  74. TOBI PODHALER [Suspect]
     Active Substance: TOBRAMYCIN
     Dosage: UNK
     Route: 055
     Dates: start: 20161028, end: 20161124
  75. TOBI PODHALER [Suspect]
     Active Substance: TOBRAMYCIN
     Dosage: UNK
     Route: 055
     Dates: start: 20170219, end: 20170319
  76. VORICONAZOLE (NGX) [Suspect]
     Active Substance: VORICONAZOLE
     Dosage: 300 MG, BID
     Route: 048
     Dates: start: 20171113
  77. BETHKIS [Suspect]
     Active Substance: TOBRAMYCIN
     Dosage: 300 MG, BID
     Route: 055
     Dates: start: 20171212, end: 20171219
  78. VANCOMYCIN [Suspect]
     Active Substance: VANCOMYCIN
     Indication: PRODUCT USED FOR UNKNOWN INDICATION
     Dosage: 1250 MG, Q8H
     Route: 042
     Dates: start: 20171104, end: 20171106
  79. OXYGEN. [Concomitant]
     Active Substance: OXYGEN
     Dosage: 7 L, UNK
     Route: 045
     Dates: start: 201610, end: 20171104
  80. PRILOSEC [Concomitant]
     Active Substance: OMEPRAZOLE MAGNESIUM
     Indication: PRODUCT USED FOR UNKNOWN INDICATION
     Dosage: 20 MG, QD
     Route: 048
     Dates: start: 20160914, end: 20171104
  81. CREON [Concomitant]
     Active Substance: PANCRELIPASE AMYLASE\PANCRELIPASE LIPASE\PANCRELIPASE PROTEASE
     Indication: CYSTIC FIBROSIS
     Dosage: UNK UNK, TID (TAKE 5 TO 6 CAPSULE CAPSULES BY MOUTH 3 TIMES A DAY WITH MEALS AND 5 WITH SNACKS (AVE)
     Route: 048
     Dates: start: 20151209, end: 20160804
  82. LANTUS [Concomitant]
     Active Substance: INSULIN GLARGINE
     Indication: BLOOD GLUCOSE DECREASED
     Dosage: UNK
     Route: 065
     Dates: start: 20180119
  83. HUMALOG [Concomitant]
     Active Substance: INSULIN LISPRO
     Dosage: UNK, QID (0-6 UNITS)
     Route: 058
  84. DUONEB [Concomitant]
     Active Substance: ALBUTEROL SULFATE\IPRATROPIUM BROMIDE
     Dosage: UNK
     Route: 065
     Dates: start: 20180102
  85. CEFTAZIDIME. [Concomitant]
     Active Substance: CEFTAZIDIME
     Indication: INFECTIVE PULMONARY EXACERBATION OF CYSTIC FIBROSIS
     Dosage: 4 G, UNK (PIGGY BACK INFUSED OVER 3 HOURS EVERY 8 HOURS)
     Route: 042
     Dates: start: 20180107
  86. ZYPREXA [Concomitant]
     Active Substance: OLANZAPINE
     Indication: ATTENTION DEFICIT HYPERACTIVITY DISORDER
     Dosage: 5 MG, UNK
     Route: 048
     Dates: start: 20180103
  87. VERAPAMIL [Concomitant]
     Active Substance: VERAPAMIL HYDROCHLORIDE
     Indication: HYPERTENSION
     Dosage: 120 MG, UNK
     Route: 042
     Dates: start: 20171225
  88. SODIUM CHLORIDE. [Concomitant]
     Active Substance: SODIUM CHLORIDE
     Indication: PRODUCT USED FOR UNKNOWN INDICATION
     Dosage: UNK
     Route: 065
     Dates: start: 20180119, end: 20180119
  89. HEPARIN [Concomitant]
     Active Substance: HEPARIN SODIUM
     Indication: DEVICE MALFUNCTION
     Dosage: UNK
     Route: 065
     Dates: start: 20180119, end: 20180125
  90. ACETAMINOPHEN. [Concomitant]
     Active Substance: ACETAMINOPHEN
     Indication: DISCOMFORT
  91. TOBI PODHALER [Suspect]
     Active Substance: TOBRAMYCIN
     Indication: CYSTIC FIBROSIS
     Dosage: UNK
     Route: 055
     Dates: start: 20160223, end: 20160321
  92. LEVAQUIN [Concomitant]
     Active Substance: LEVOFLOXACIN
     Indication: COUGH
     Dosage: 750 MG, BID
     Route: 048
     Dates: start: 20171020, end: 20171108
  93. DELTASONE [Concomitant]
     Active Substance: PREDNISONE
     Indication: INFECTIVE PULMONARY EXACERBATION OF CYSTIC FIBROSIS
     Dosage: 5 MG, UNK
     Route: 048
     Dates: start: 20170927, end: 20171105
  94. ZERBAXA [Concomitant]
     Active Substance: CEFTOLOZANE SULFATE\TAZOBACTAM SODIUM
     Indication: PRODUCT USED FOR UNKNOWN INDICATION
     Dosage: 1.5 G, UNK (IV PIGGY BACK INFUSED OVER 3 HOURS EVERY 8 HOURS)
     Route: 042
     Dates: start: 20171217, end: 20171218
  95. PROPOFOL. [Concomitant]
     Active Substance: PROPOFOL
     Indication: SEDATION
     Dosage: UNK
     Route: 065
     Dates: start: 20171213
  96. PROPOFOL. [Concomitant]
     Active Substance: PROPOFOL
     Dosage: UNK
     Route: 065
     Dates: start: 20180119, end: 20180125
  97. L-METHYLFOLATE [Concomitant]
     Active Substance: LEVOMEFOLIC ACID
     Indication: PRODUCT USED FOR UNKNOWN INDICATION
     Dosage: 7.5 MG, QD
     Route: 048
  98. KEFLEX [Concomitant]
     Active Substance: CEPHALEXIN
     Indication: PRODUCT USED FOR UNKNOWN INDICATION
     Route: 065
  99. ALBUTEROL. [Concomitant]
     Active Substance: ALBUTEROL
     Indication: CYSTIC FIBROSIS
  100. HUMALOG [Concomitant]
     Active Substance: INSULIN LISPRO
     Dosage: ONE UNIT FOR EVERY 50MG/DL
     Route: 058
  101. DUONEB [Concomitant]
     Active Substance: ALBUTEROL SULFATE\IPRATROPIUM BROMIDE
     Dosage: 3 ML (2.5-0.5 MG/3 ML), Q8H
     Route: 055
     Dates: start: 20180124
  102. PULMICORT TURBUHALER [Concomitant]
     Active Substance: BUDESONIDE
     Dosage: 0.5 MG, BID
     Route: 055
     Dates: start: 20171212
  103. CIPRO [Concomitant]
     Active Substance: CIPROFLOXACIN HYDROCHLORIDE
     Dosage: UNK
     Route: 065
     Dates: start: 20160428, end: 20160507
  104. CIPRO [Concomitant]
     Active Substance: CIPROFLOXACIN HYDROCHLORIDE
     Dosage: 400 MG, TID
     Route: 042
     Dates: start: 20180121, end: 20180125
  105. MICAFUNGIN. [Concomitant]
     Active Substance: MICAFUNGIN SODIUM
     Indication: CYSTIC FIBROSIS
     Dosage: 100 MG, UNK (IV PIGGY BACK DAILY)
     Route: 042
     Dates: start: 20180120, end: 20180125
  106. LOVENOX [Concomitant]
     Active Substance: ENOXAPARIN SODIUM
     Indication: PROPHYLAXIS
     Dosage: 40 MG/0.4ML, UNK
     Route: 042
     Dates: start: 20180123, end: 20180125
  107. URSODIOL. [Concomitant]
     Active Substance: URSODIOL
     Indication: INFECTIVE PULMONARY EXACERBATION OF CYSTIC FIBROSIS
     Dosage: 500 MG, UNK
     Route: 048
     Dates: start: 20171211
  108. TOBI PODHALER [Suspect]
     Active Substance: TOBRAMYCIN
     Dosage: UNK
     Route: 055
     Dates: start: 20160823, end: 20160920
  109. CAYSTON [Suspect]
     Active Substance: AZTREONAM
     Dosage: UNK
     Route: 065
     Dates: start: 20161125, end: 20161223
  110. CREON [Concomitant]
     Active Substance: PANCRELIPASE AMYLASE\PANCRELIPASE LIPASE\PANCRELIPASE PROTEASE
     Dosage: UNK
     Route: 065
     Dates: start: 20151209, end: 20171222
  111. FLONASE [Concomitant]
     Active Substance: FLUTICASONE PROPIONATE
     Dosage: 16 G (50UG), QHS
     Route: 055
  112. Z-MAX [Concomitant]
     Indication: INFLAMMATION
     Dosage: 500 MG, THRICE WEEKLY
     Route: 048
  113. ATARAX [Concomitant]
     Active Substance: HYDROXYZINE HYDROCHLORIDE
     Dosage: 1 DF, TID
     Route: 048
  114. TYLENOL [Concomitant]
     Active Substance: ACETAMINOPHEN
     Indication: PAIN
     Dosage: 1 DF, Q4H
     Route: 054
  115. ALBUTEROL. [Concomitant]
     Active Substance: ALBUTEROL
     Indication: ASTHMA
     Dosage: 2.5 MG, PRN
     Route: 055
     Dates: start: 20170427, end: 20171104
  116. ALBUTEROL. [Concomitant]
     Active Substance: ALBUTEROL
     Indication: WHEEZING
  117. DOXYCYCLINE. [Concomitant]
     Active Substance: DOXYCYCLINE
     Indication: INFECTIVE PULMONARY EXACERBATION OF CYSTIC FIBROSIS
     Dosage: 100 MG, UNK (IV PIGGY BACK EVERY 12 HOURS)
     Route: 042
     Dates: start: 20180107
  118. CLONIDINE. [Concomitant]
     Active Substance: CLONIDINE
     Indication: SEDATION
     Dosage: 0.3 MG, UNK
     Route: 048
     Dates: start: 20171221
  119. OMEPRAZOLE. [Concomitant]
     Active Substance: OMEPRAZOLE
     Dosage: UNK
     Route: 065
     Dates: start: 20180119, end: 20180119
  120. NAFCILLIN [Concomitant]
     Active Substance: NAFCILLIN SODIUM
     Indication: CYSTIC FIBROSIS
     Dosage: UNK
     Route: 065
     Dates: start: 20160701, end: 20160707
  121. ACETAMINOPHEN. [Concomitant]
     Active Substance: ACETAMINOPHEN
     Indication: PAIN
     Dosage: 650 MG, PRN
     Route: 054
     Dates: start: 20171212

REACTIONS (57)
  - Granulocytosis [Unknown]
  - Infective pulmonary exacerbation of cystic fibrosis [Recovered/Resolved]
  - Ill-defined disorder [Unknown]
  - Blood creatinine increased [Recovered/Resolved]
  - Infective pulmonary exacerbation of cystic fibrosis [Fatal]
  - Pneumonia [Recovered/Resolved]
  - Acute respiratory failure [Recovered/Resolved]
  - Tachycardia [Recovered/Resolved]
  - Infective exacerbation of bronchiectasis [Recovered/Resolved]
  - Hypercapnia [Recovered/Resolved]
  - Hypertension [Recovered/Resolved]
  - Metabolic acidosis [Recovered/Resolved]
  - Weight decreased [Recovered/Resolved]
  - Pyrexia [Fatal]
  - Constipation [Recovered/Resolved]
  - Glucose tolerance test [Not Recovered/Not Resolved]
  - Asthenia [Not Recovered/Not Resolved]
  - Muscle atrophy [Unknown]
  - Fungal disease carrier [Unknown]
  - Cough [Unknown]
  - Dyspnoea [Fatal]
  - Pulmonary congestion [Recovered/Resolved]
  - Cystic fibrosis [Recovered/Resolved]
  - Alkalosis hypochloraemic [Recovered/Resolved]
  - Hyperglycaemia [Unknown]
  - Paresis [Recovered/Resolved]
  - Respiratory failure [Recovered/Resolved]
  - Acute respiratory distress syndrome [Fatal]
  - Bronchitis chronic [Fatal]
  - Hypercapnia [Recovered/Resolved]
  - Intensive care unit acquired weakness [Unknown]
  - Generalised oedema [Recovered/Resolved]
  - Acute kidney injury [Recovered/Resolved]
  - Dysphagia [Recovered/Resolved]
  - Anaemia [Unknown]
  - Concomitant disease aggravated [Unknown]
  - Bronchial haemorrhage [Recovered/Resolved]
  - Bandaemia [Unknown]
  - Hypoxia [Recovered/Resolved]
  - Thrombocytosis [Recovered/Resolved]
  - Hypokalaemia [Recovered/Resolved]
  - Haemoptysis [Recovered/Resolved]
  - Hypernatraemia [Recovered/Resolved]
  - Glucose tolerance impaired [Recovered/Resolved]
  - Haematuria [Recovered/Resolved]
  - Acidosis [Recovered/Resolved]
  - Hypervolaemia [Recovered/Resolved]
  - Insomnia [Recovered/Resolved]
  - Gastrointestinal disorder [Fatal]
  - Leukocytosis [Recovered/Resolved]
  - Iron deficiency [Recovered/Resolved]
  - Blood urea increased [Unknown]
  - Sepsis [Unknown]
  - Gastroenteritis norovirus [Recovered/Resolved]
  - Stenotrophomonas test positive [Unknown]
  - Diarrhoea [Recovered/Resolved]
  - Hypertriglyceridaemia [Recovered/Resolved]

NARRATIVE: CASE EVENT DATE: 20160303
